FAERS Safety Report 24346659 (Version 1)
Quarter: 2024Q3

REPORT INFORMATION
  Report Type: Spontaneous
  Country: BE (occurrence: BE)
  Receive Date: 20240921
  Receipt Date: 20240921
  Transmission Date: 20241016
  Serious: Yes (Life-Threatening, Hospitalization, Disabling)
  Sender: AMGEN
  Company Number: None

PATIENT
  Age: 76 Year
  Sex: Female
  Weight: 46.2 kg

DRUGS (10)
  1. EVENITY [Suspect]
     Active Substance: ROMOSOZUMAB-AQQG
     Indication: Osteoporosis
     Dosage: UNK (1X/MONTH FIRST INJECTION AT THE BEGINNING OF JULY 2024 FOLLOWED BY A STROKE 15 DAYS LATER. SECO
     Route: 058
     Dates: start: 202407, end: 20240902
  2. Pantomed [Concomitant]
     Indication: Product used for unknown indication
     Dosage: 1 DOSAGE FORM, ONCE DAILY (QD) ON AN EMPTY STOMACH
  3. BEMPEDOIC ACID [Concomitant]
     Active Substance: BEMPEDOIC ACID
     Indication: Product used for unknown indication
     Dosage: 1 DOSAGE FORM, ONCE DAILY (QD) AT 8 AM
  4. STEOVIT FORTE [Concomitant]
     Indication: Product used for unknown indication
     Dosage: UNK
  5. REMERGON [Concomitant]
     Active Substance: MIRTAZAPINE
     Indication: Product used for unknown indication
     Dosage: 1 DOSAGE FORM, ONCE DAILY (QD)  IN THE EVENING
  6. ALLOPURINOL [Concomitant]
     Active Substance: ALLOPURINOL
     Indication: Product used for unknown indication
     Dosage: 1 DOSAGE FORM, ONCE DAILY (QD) AT 8 AM
  7. ACETAMINOPHEN [Concomitant]
     Active Substance: ACETAMINOPHEN
     Indication: Product used for unknown indication
     Dosage: UNK, IF NECESSARY
  8. ASPIRIN [Concomitant]
     Active Substance: ASPIRIN
     Indication: Product used for unknown indication
     Dosage: 1 DOSAGE FORM, ONCE DAILY (QD) AT 8 AM
  9. CLOPIDOGREL [Concomitant]
     Active Substance: CLOPIDOGREL BISULFATE
     Indication: Product used for unknown indication
     Dosage: 1 DOSAGE FORM, ONCE DAILY (QD), AT 8 AM
  10. BIOCONDIL + MOBILITYL [Concomitant]
     Indication: Product used for unknown indication
     Dosage: 3 DOSAGE FORM (MAX 3 TABS AT 12 PM)

REACTIONS (3)
  - Cerebrovascular accident [Recovering/Resolving]
  - Contraindicated product administered [Unknown]
  - Drug rechallenge positive [Unknown]

NARRATIVE: CASE EVENT DATE: 20240801
